FAERS Safety Report 18805418 (Version 3)
Quarter: 2021Q1

REPORT INFORMATION
  Report Type: Report from Study
  Country: US (occurrence: US)
  Receive Date: 20210129
  Receipt Date: 20210302
  Transmission Date: 20210419
  Serious: Yes (Hospitalization, Other)
  Sender: FDA-Public Use
  Company Number: US-INSMED, INC.-US-INS-20-01601

PATIENT
  Age: 68 Year
  Sex: Male

DRUGS (1)
  1. ARIKAYCE [Suspect]
     Active Substance: AMIKACIN
     Indication: MYCOBACTERIUM AVIUM COMPLEX INFECTION
     Dosage: 590 MILLIGRAM, QD
     Route: 055
     Dates: start: 2020, end: 202012

REACTIONS (11)
  - Nocturia [Not Recovered/Not Resolved]
  - Therapy interrupted [Unknown]
  - Dizziness postural [Not Recovered/Not Resolved]
  - Urinary hesitation [Not Recovered/Not Resolved]
  - Diarrhoea [Unknown]
  - Adverse drug reaction [Unknown]
  - Blood creatinine increased [Recovered/Resolved]
  - Central venous catheterisation [Unknown]
  - Abdominal pain upper [Not Recovered/Not Resolved]
  - Skin mass [Recovered/Resolved]
  - Decreased appetite [Not Recovered/Not Resolved]

NARRATIVE: CASE EVENT DATE: 2020
